FAERS Safety Report 22289931 (Version 2)
Quarter: 2023Q2

REPORT INFORMATION
  Report Type: Report from Study
  Country: CN (occurrence: None)
  Receive Date: 20230505
  Receipt Date: 20230602
  Transmission Date: 20230722
  Serious: Yes (Life-Threatening)
  Sender: FDA-Public Use
  Company Number: 2023A105190

PATIENT
  Age: 950 Month
  Sex: Female

DRUGS (7)
  1. SAVOLITINIB [Suspect]
     Active Substance: SAVOLITINIB
     Indication: Non-small cell lung cancer
     Dosage: 400 MG QD
     Route: 048
     Dates: start: 20230307, end: 20230403
  2. SAVOLITINIB [Suspect]
     Active Substance: SAVOLITINIB
     Indication: Non-small cell lung cancer
     Dosage: 600 MG QD
     Route: 048
     Dates: start: 20230404
  3. DURVALUMAB [Suspect]
     Active Substance: DURVALUMAB
     Indication: Non-small cell lung cancer
     Route: 042
     Dates: start: 20230307, end: 20230307
  4. DURVALUMAB [Suspect]
     Active Substance: DURVALUMAB
     Indication: Non-small cell lung cancer
     Route: 042
     Dates: start: 20230404, end: 20230404
  5. ILAPRAZOLE ENTERIC-COATED TABLETS?IRIAN? [Concomitant]
     Dosage: 5 MG BD
     Route: 048
     Dates: start: 20230504
  6. MAGNESIUM ISOGLYCYRRHIZATE INJECTION [Concomitant]
     Dosage: 200 MG QD
     Route: 042
     Dates: start: 20230504
  7. GLUTATHIONE [Concomitant]
     Active Substance: GLUTATHIONE
     Dosage: 1200 MG QD
     Route: 042
     Dates: start: 20230504

REACTIONS (2)
  - Alanine aminotransferase increased [Recovered/Resolved]
  - Aspartate aminotransferase increased [Recovered/Resolved]

NARRATIVE: CASE EVENT DATE: 20230504
